FAERS Safety Report 22265744 (Version 1)
Quarter: 2023Q2

REPORT INFORMATION
  Report Type: Spontaneous
  Country: US (occurrence: None)
  Receive Date: 20230426
  Receipt Date: 20230426
  Transmission Date: 20230721
  Serious: Yes (Hospitalization)
  Sender: FDA-Public Use
  Company Number: None

PATIENT
  Age: 58 Year
  Sex: Male

DRUGS (2)
  1. OPSUMIT [Suspect]
     Active Substance: MACITENTAN
     Indication: Pulmonary arterial hypertension
     Dosage: FREQUENCY : DAILY;?
     Route: 048
     Dates: start: 202304
  2. UPTRAVI [Suspect]
     Active Substance: SELEXIPAG

REACTIONS (4)
  - Respiratory disorder [None]
  - Headache [None]
  - Joint stiffness [None]
  - Vision blurred [None]

NARRATIVE: CASE EVENT DATE: 20230424
